FAERS Safety Report 6388538-1 (Version None)
Quarter: 2009Q4

REPORT INFORMATION
  Report Type: 
  Country: None (occurrence: None)
  Receive Date: 20091005
  Receipt Date: 20090929
  Transmission Date: 20100525
  Serious: Yes (Hospitalization)
  Sender: FDA-Public Use
  Company Number: US-ROCHE-649153

PATIENT
  Age: 67 Year
  Sex: Male

DRUGS (17)
  1. CAPECITABINE [Suspect]
     Indication: COLON CANCER
     Dosage: FIRST 14 DAYS OF 21 DAY CYCLE
     Route: 048
     Dates: start: 20090410
  2. CAPECITABINE [Suspect]
     Route: 048
     Dates: start: 20090501
  3. CAPECITABINE [Suspect]
     Route: 048
     Dates: start: 20090522
  4. CAPECITABINE [Suspect]
     Route: 048
     Dates: start: 20090702, end: 20090718
  5. CAPECITABINE [Suspect]
     Route: 048
     Dates: start: 20090724
  6. BEVACIZUMAB [Suspect]
     Indication: COLON CANCER
     Route: 065
     Dates: start: 20090612
  7. BEVACIZUMAB [Suspect]
     Dosage: STOP DATE REPORTED AS 2009
     Route: 065
     Dates: start: 20090702
  8. ELOXATIN [Suspect]
     Indication: COLON CANCER
     Route: 042
     Dates: start: 20090410
  9. ELOXATIN [Suspect]
     Route: 042
     Dates: start: 20090501
  10. ELOXATIN [Suspect]
     Route: 042
     Dates: start: 20090522
  11. ELOXATIN [Suspect]
     Route: 042
     Dates: start: 20090702, end: 20090702
  12. ELOXATIN [Suspect]
     Route: 042
     Dates: start: 20090724
  13. ELOXATIN [Suspect]
     Route: 042
     Dates: start: 20090902, end: 20090902
  14. ALOXI [Concomitant]
     Indication: NAUSEA
     Route: 065
  15. REQUIP [Concomitant]
     Indication: PARKINSON'S DISEASE
     Route: 065
  16. SINEMET [Concomitant]
     Indication: PARKINSON'S DISEASE
     Route: 065
     Dates: start: 20090201
  17. XANAX [Concomitant]
     Indication: ANXIETY
     Route: 065
     Dates: start: 20090401

REACTIONS (11)
  - DYSAESTHESIA PHARYNX [None]
  - DYSPHAGIA [None]
  - EYELID PTOSIS [None]
  - GASTROINTESTINAL DISORDER [None]
  - HYPOAESTHESIA ORAL [None]
  - LACRIMATION INCREASED [None]
  - LIP SWELLING [None]
  - PARAESTHESIA ORAL [None]
  - SPEECH DISORDER [None]
  - TRANSIENT ISCHAEMIC ATTACK [None]
  - TREMOR [None]
